FAERS Safety Report 23020620 (Version 1)
Quarter: 2023Q4

REPORT INFORMATION
  Report Type: Other
  Country: None (occurrence: US)
  Receive Date: 20231003
  Receipt Date: 20231003
  Transmission Date: 20240110
  Serious: Yes (Other)
  Sender: FDA-Public Use
  Company Number: US-Marksans Pharma Limited-2146590

PATIENT
  Age: 40 Year
  Sex: Female

DRUGS (16)
  1. GABAPENTIN [Suspect]
     Active Substance: GABAPENTIN
     Indication: Product used for unknown indication
     Route: 065
  2. ABACAVIR [Concomitant]
     Active Substance: ABACAVIR
     Route: 065
  3. ACETAMINOPHEN\OXYCODONE HYDROCHLORIDE [Concomitant]
     Active Substance: ACETAMINOPHEN\OXYCODONE HYDROCHLORIDE
     Route: 065
  4. ALPRAZOLAM [Concomitant]
     Active Substance: ALPRAZOLAM
     Route: 065
  5. AMITRIPTYLINE HYDROCHLORIDE [Concomitant]
     Active Substance: AMITRIPTYLINE HYDROCHLORIDE
     Route: 065
  6. CARISOPRODOL [Concomitant]
     Active Substance: CARISOPRODOL
     Route: 065
  7. DOCUSATE [Concomitant]
     Active Substance: DOCUSATE
     Route: 065
  8. EMTRICITABINE [Concomitant]
     Active Substance: EMTRICITABINE
     Route: 065
  9. LEVETIRACETAM [Concomitant]
     Active Substance: LEVETIRACETAM
     Route: 065
  10. LORATADINE [Concomitant]
     Active Substance: LORATADINE
     Route: 065
  11. NICOTINE [Concomitant]
     Active Substance: NICOTINE
     Route: 065
  12. ONDANSETRON [Concomitant]
     Active Substance: ONDANSETRON
     Route: 065
  13. PREDNISONE [Concomitant]
     Active Substance: PREDNISONE
     Route: 065
  14. RALTEGRAVIR [Concomitant]
     Active Substance: RALTEGRAVIR
     Route: 065
  15. TACROLIMUS [Concomitant]
     Active Substance: TACROLIMUS
     Route: 065
  16. ZOLPIDEM [Concomitant]
     Active Substance: ZOLPIDEM TARTRATE
     Route: 065

REACTIONS (4)
  - Asterixis [Recovered/Resolved]
  - Myoclonus [Recovered/Resolved]
  - End stage renal disease [Unknown]
  - Condition aggravated [Recovered/Resolved]
